FAERS Safety Report 7510303-X (Version None)
Quarter: 2011Q2

REPORT INFORMATION
  Report Type: 
  Country: None (occurrence: None)
  Receive Date: 20110527
  Receipt Date: 20110518
  Transmission Date: 20111010
  Serious: Yes (Hospitalization, Other)
  Sender: FDA-Public Use
  Company Number: US-ASTRAZENECA-2011SE30806

PATIENT
  Sex: Female

DRUGS (1)
  1. ARIMIDEX [Suspect]
     Route: 048

REACTIONS (8)
  - BONE NEOPLASM MALIGNANT [None]
  - THINKING ABNORMAL [None]
  - WEIGHT DECREASED [None]
  - DECREASED APPETITE [None]
  - HIP ARTHROPLASTY [None]
  - AMNESIA [None]
  - BACK PAIN [None]
  - CONFUSIONAL STATE [None]
